FAERS Safety Report 25038030 (Version 1)
Quarter: 2025Q1

REPORT INFORMATION
  Report Type: Report from Study
  Country: US (occurrence: US)
  Receive Date: 20250304
  Receipt Date: 20250304
  Transmission Date: 20250408
  Serious: Yes (Life-Threatening, Hospitalization, Other)
  Sender: ABBVIE
  Company Number: US-ABBVIE-6141622

PATIENT
  Age: 71 Year
  Sex: Female

DRUGS (2)
  1. HUMIRA [Suspect]
     Active Substance: ADALIMUMAB
     Indication: Psoriatic arthropathy
     Route: 058
     Dates: start: 20200218
  2. HUMIRA [Suspect]
     Active Substance: ADALIMUMAB
     Indication: Psoriasis

REACTIONS (13)
  - Renal failure [Recovering/Resolving]
  - Sepsis [Recovering/Resolving]
  - Pulmonary thrombosis [Recovering/Resolving]
  - Feeding disorder [Unknown]
  - Atrial fibrillation [Recovering/Resolving]
  - COVID-19 [Unknown]
  - Pneumonia [Recovered/Resolved]
  - Haemorrhage [Recovering/Resolving]
  - Spinal fusion surgery [Recovered/Resolved]
  - Abnormal loss of weight [Unknown]
  - Psoriatic arthropathy [Not Recovered/Not Resolved]
  - Hiatus hernia [Recovering/Resolving]
  - Pneumonia [Recovering/Resolving]

NARRATIVE: CASE EVENT DATE: 20240101
